FAERS Safety Report 5750133-2 (Version None)
Quarter: 2008Q2

REPORT INFORMATION
  Report Type: 
  Country: None (occurrence: None)
  Receive Date: 20080527
  Receipt Date: 20080516
  Transmission Date: 20081010
  Serious: Yes (Death, Other)
  Sender: FDA-Public Use
  Company Number: US-PFIZER INC-2008029921

PATIENT
  Sex: Male
  Weight: 85.7 kg

DRUGS (3)
  1. ZOLOFT [Suspect]
     Indication: DEPRESSION
     Route: 048
  2. ZOLOFT [Suspect]
     Indication: ANXIETY
  3. TRAZODONE HYDROCHLORIDE [Suspect]
     Indication: INSOMNIA
     Route: 048
     Dates: start: 20050321

REACTIONS (2)
  - ABNORMAL BEHAVIOUR [None]
  - COMPLETED SUICIDE [None]
